FAERS Safety Report 9262613 (Version 1)
Quarter: 2013Q2

REPORT INFORMATION
  Report Type: Spontaneous
  Country: US (occurrence: None)
  Receive Date: 20130426
  Receipt Date: 20130426
  Transmission Date: 20140414
  Serious: No
  Sender: FDA-Public Use
  Company Number: None

PATIENT
  Age: 5 None
  Sex: Male

DRUGS (1)
  1. AMOXICILLIN [Suspect]
     Indication: EAR INFECTION

REACTIONS (3)
  - Serum sickness [None]
  - Rash pruritic [None]
  - Swelling [None]
